FAERS Safety Report 15569612 (Version 7)
Quarter: 2018Q4

REPORT INFORMATION
  Report Type: Spontaneous
  Country: US (occurrence: US)
  Receive Date: 20181031
  Receipt Date: 20181226
  Transmission Date: 20190205
  Serious: Yes (Death, Other)
  Sender: FDA-Public Use
  Company Number: US-BIOGEN-2018BI00652159

PATIENT
  Age: 58 Year
  Sex: Female

DRUGS (4)
  1. TYSABRI [Suspect]
     Active Substance: NATALIZUMAB
     Route: 065
     Dates: start: 201606, end: 20180920
  2. TYSABRI [Suspect]
     Active Substance: NATALIZUMAB
     Indication: MULTIPLE SCLEROSIS
     Route: 065
     Dates: start: 20080122, end: 20110526
  3. TYSABRI [Suspect]
     Active Substance: NATALIZUMAB
     Route: 065
     Dates: start: 20110823
  4. ACETAMINOPHEN. [Concomitant]
     Active Substance: ACETAMINOPHEN
     Indication: PRODUCT USED FOR UNKNOWN INDICATION
     Route: 048

REACTIONS (7)
  - Arrhythmia [Fatal]
  - Seizure [Unknown]
  - Animal attack [Unknown]
  - Cardiac failure [Fatal]
  - Pneumonia aspiration [Fatal]
  - Cerebrovascular accident [Unknown]
  - Heart injury [Unknown]

NARRATIVE: CASE EVENT DATE: 20181018
